FAERS Safety Report 5630243-0 (Version None)
Quarter: 2008Q1

REPORT INFORMATION
  Report Type: 
  Country: None (occurrence: None)
  Receive Date: 20080219
  Receipt Date: 20080208
  Transmission Date: 20080703
  Serious: Yes (Hospitalization)
  Sender: FDA-Public Use
  Company Number: US-JNJFOC-20080202188

PATIENT
  Sex: Male
  Weight: 21 kg

DRUGS (3)
  1. INFLIXIMAB [Suspect]
     Indication: COLITIS ULCERATIVE
     Route: 042
  2. URSODIOL [Concomitant]
     Route: 065
  3. ORAL SUPPLEMENTS [Concomitant]
     Route: 065

REACTIONS (1)
  - POST PROCEDURAL HAEMORRHAGE [None]
